FAERS Safety Report 5837835-4 (Version None)
Quarter: 2008Q3

REPORT INFORMATION
  Report Type: 
  Country: None (occurrence: None)
  Receive Date: 20080808
  Receipt Date: 20080319
  Transmission Date: 20090109
  Serious: No
  Sender: FDA-Public Use
  Company Number: A0509599A

PATIENT
  Sex: Female

DRUGS (1)
  1. PAXIL CR [Suspect]
     Indication: DRUG USE FOR UNKNOWN INDICATION
     Dosage: 25MG PER DAY
     Route: 048

REACTIONS (5)
  - ADVERSE DRUG REACTION [None]
  - CHANGE OF BOWEL HABIT [None]
  - DIARRHOEA [None]
  - NAUSEA [None]
  - WITHDRAWAL SYNDROME [None]
